FAERS Safety Report 4383244-7 (Version None)
Quarter: 2004Q2

REPORT INFORMATION
  Report Type: 
  Country: None (occurrence: None)
  Receive Date: 20040622
  Receipt Date: 20040622
  Transmission Date: 20050107
  Serious: Yes (Hospitalization)
  Sender: FDA-Public Use
  Company Number: None

PATIENT
  Sex: Male
  Weight: 67.8128 kg

DRUGS (2)
  1. PACLITAXEL [Suspect]
     Indication: CARCINOMA
     Dosage: 300 MG DAY 1 INTRAVENOUS
     Route: 042
     Dates: start: 20040603, end: 20040603
  2. GEMCITABINE [Suspect]
     Indication: CARCINOMA
     Dosage: 1800 MG DAY 1; DAY INTRAVENOUS
     Route: 042
     Dates: start: 20040603, end: 20040610

REACTIONS (7)
  - FAILURE TO THRIVE [None]
  - HYPOTENSION [None]
  - HYPOVENTILATION [None]
  - ILEUS [None]
  - PNEUMONIA ASPIRATION [None]
  - RESPIRATORY ACIDOSIS [None]
  - URINARY TRACT INFECTION [None]
